FAERS Safety Report 18620735 (Version 1)
Quarter: 2020Q4

REPORT INFORMATION
  Report Type: Spontaneous
  Country: IT (occurrence: IT)
  Receive Date: 20201216
  Receipt Date: 20201216
  Transmission Date: 20210114
  Serious: Yes (Other)
  Sender: FDA-Public Use
  Company Number: IT-SAMSUNG BIOEPIS-SB-2020-37287

PATIENT
  Age: 56 Year
  Sex: Male
  Weight: 81 kg

DRUGS (1)
  1. FLIXABI [Suspect]
     Active Substance: INFLIXIMAB
     Indication: PSORIATIC ARTHROPATHY
     Route: 042
     Dates: start: 20180809, end: 20200709

REACTIONS (2)
  - Loss of therapeutic response [Unknown]
  - Psoriatic arthropathy [Unknown]
